FAERS Safety Report 7423470-3 (Version None)
Quarter: 2011Q2

REPORT INFORMATION
  Report Type: 
  Country: None (occurrence: None)
  Receive Date: 20110419
  Receipt Date: 20110412
  Transmission Date: 20111010
  Serious: Yes (Hospitalization)
  Sender: FDA-Public Use
  Company Number: US-B.I. PHARMACEUTICALS,INC./RIDGEFIELD-2011-BP-02725BP

PATIENT
  Age: 70 Year
  Sex: Female

DRUGS (6)
  1. SYNTHROID [Concomitant]
     Indication: HYPOTHYROIDISM
  2. ACETAMINOPHEN [Concomitant]
  3. PAXIL [Concomitant]
     Indication: DEPRESSION
  4. PAXIL [Concomitant]
     Indication: ANXIETY
  5. ZANTAC 150 [Suspect]
     Indication: GASTROOESOPHAGEAL REFLUX DISEASE
     Dosage: 150 MG
     Route: 048
     Dates: start: 20101101
  6. DIOVAN HCT [Concomitant]
     Indication: HYPERTENSION

REACTIONS (3)
  - COLONIC STENOSIS [None]
  - CAECAL LESION EXCISION [None]
  - MEDICATION RESIDUE [None]
